FAERS Safety Report 15105630 (Version 1)
Quarter: 2018Q3

REPORT INFORMATION
  Report Type: Report from Study
  Country: IT (occurrence: IT)
  Receive Date: 20180704
  Receipt Date: 20180704
  Transmission Date: 20181010
  Serious: Yes (Hospitalization)
  Sender: FDA-Public Use
  Company Number: IT-TEVA-2018-IT-918531

PATIENT
  Age: 26 Year
  Sex: Male

DRUGS (2)
  1. ASPIRINA [Suspect]
     Active Substance: ASPIRIN
     Indication: INFLUENZA
     Dosage: 2 GRAM DAILY;
     Route: 048
     Dates: start: 20180410, end: 20180414
  2. KETOPROFEN. [Suspect]
     Active Substance: KETOPROFEN
     Indication: INFLUENZA
     Route: 065
     Dates: start: 20180410, end: 20180414

REACTIONS (3)
  - Medication error [Not Recovered/Not Resolved]
  - Haematemesis [Not Recovered/Not Resolved]
  - Retching [Not Recovered/Not Resolved]

NARRATIVE: CASE EVENT DATE: 20180413
